FAERS Safety Report 7372022-2 (Version None)
Quarter: 2011Q1

REPORT INFORMATION
  Report Type: 
  Country: None (occurrence: None)
  Receive Date: 20110324
  Receipt Date: 20110126
  Transmission Date: 20110831
  Serious: Yes (Hospitalization, Other)
  Sender: FDA-Public Use
  Company Number: US-BAYER-200818212NA

PATIENT
  Sex: Female
  Weight: 109 kg

DRUGS (9)
  1. BETASERON [Suspect]
     Indication: SECONDARY PROGRESSIVE MULTIPLE SCLEROSIS
     Route: 058
     Dates: start: 20070117
  2. ATENOLOL [Concomitant]
  3. BETASERON [Suspect]
     Dosage: 6 MIU, QOD
     Route: 058
  4. CHLORTHALIDONE [Concomitant]
  5. METOPROLOL [Concomitant]
  6. OMEPRAZOLE [Concomitant]
  7. BETASERON [Suspect]
     Dosage: 8 MIU, QOD
     Route: 058
  8. BETASERON [Suspect]
     Route: 058
  9. BETASERON [Suspect]
     Route: 058

REACTIONS (14)
  - DYSPNOEA [None]
  - PAIN IN EXTREMITY [None]
  - CARDIAC DISORDER [None]
  - CHEST DISCOMFORT [None]
  - ARTHRALGIA [None]
  - NAUSEA [None]
  - OEDEMA PERIPHERAL [None]
  - BACK PAIN [None]
  - ASTHENIA [None]
  - ATRIAL FIBRILLATION [None]
  - EPSTEIN-BARR VIRUS INFECTION [None]
  - HEPATOMEGALY [None]
  - SPLENOMEGALY [None]
  - CHEST PAIN [None]
